FAERS Safety Report 7340411-8 (Version None)
Quarter: 2011Q1

REPORT INFORMATION
  Report Type: 
  Country: None (occurrence: None)
  Receive Date: 20110228
  Receipt Date: 20110210
  Transmission Date: 20110831
  Serious: Yes (Other)
  Sender: FDA-Public Use
  Company Number: 2010SP064260

PATIENT
  Sex: Male

DRUGS (5)
  1. HYDROCHLOROTHIAZIDE [Concomitant]
  2. ALTACE [Concomitant]
  3. NITRO-DUR .6MG/HR SYSTEM (GLYCERYL TRINITRATE /00003201/) [Suspect]
     Indication: ANGINA PECTORIS
     Dates: end: 20100901
  4. NITRO-DUR .6MG/HR SYSTEM (GLYCERYL TRINITRATE /00003201/) [Suspect]
     Indication: ANGINA PECTORIS
     Dates: end: 20101201
  5. FLOMAX [Concomitant]

REACTIONS (1)
  - APPLICATION SITE HAEMATOMA [None]
